FAERS Safety Report 20987736 (Version 1)
Quarter: 2022Q2

REPORT INFORMATION
  Report Type: Spontaneous
  Country: PT (occurrence: PT)
  Receive Date: 20220621
  Receipt Date: 20220621
  Transmission Date: 20220721
  Serious: Yes (Hospitalization)
  Sender: FDA-Public Use
  Company Number: None

PATIENT
  Age: 58 Year
  Sex: Male

DRUGS (2)
  1. INFLIXIMAB [Suspect]
     Active Substance: INFLIXIMAB
     Indication: Crohn^s disease
     Dosage: INJECTABLE SOLUTION
     Route: 042
     Dates: start: 20190201, end: 20220316
  2. INFLIXIMAB [Suspect]
     Active Substance: INFLIXIMAB
     Dosage: INJECTABLE SOLUTION
     Route: 042
     Dates: start: 20220316

REACTIONS (3)
  - Drug eruption [Recovered/Resolved]
  - Product use issue [Unknown]
  - Incorrect dose administered [Unknown]

NARRATIVE: CASE EVENT DATE: 20220316
